FAERS Safety Report 20969130 (Version 1)
Quarter: 2022Q2

REPORT INFORMATION
  Report Type: Spontaneous
  Country: CN (occurrence: CN)
  Receive Date: 20220616
  Receipt Date: 20220616
  Transmission Date: 20220721
  Serious: Yes (Other)
  Sender: FDA-Public Use
  Company Number: CN-PFIZER INC-202200837904

PATIENT

DRUGS (1)
  1. AROMASIN [Suspect]
     Active Substance: EXEMESTANE
     Dosage: UNK
     Route: 048

REACTIONS (6)
  - Neuropathy peripheral [Unknown]
  - Abdominal distension [Unknown]
  - Hypoaesthesia [Unknown]
  - Eye disorder [Unknown]
  - Head discomfort [Unknown]
  - Discomfort [Unknown]
